FAERS Safety Report 17222681 (Version 3)
Quarter: 2020Q1

REPORT INFORMATION
  Report Type: Spontaneous
  Country: US (occurrence: US)
  Receive Date: 20200102
  Receipt Date: 20200205
  Transmission Date: 20200409
  Serious: No
  Sender: FDA-Public Use
  Company Number: US-009507513-2001USA000044

PATIENT
  Age: 40 Year
  Sex: Male

DRUGS (3)
  1. PROVENTIL [Suspect]
     Active Substance: ALBUTEROL
     Indication: ASTHMA
     Dosage: 1 TO 2 ACTUATIONS EVERY 4 TO 6 HOURS AS NEEDED
     Dates: start: 2017
  2. PROVENTIL [Suspect]
     Active Substance: ALBUTEROL
     Dosage: 1 TO 2 ACTUATIONS EVERY 4 TO 6 HOURS AS NEEDED
     Dates: start: 2017
  3. LISINOPRIL. [Concomitant]
     Active Substance: LISINOPRIL

REACTIONS (4)
  - Asthma [Recovered/Resolved]
  - Respiratory tract irritation [Recovered/Resolved]
  - Product quality issue [Unknown]
  - Poor quality device used [Unknown]

NARRATIVE: CASE EVENT DATE: 20191229
